FAERS Safety Report 7323273-4 (Version None)
Quarter: 2011Q1

REPORT INFORMATION
  Report Type: 
  Country: None (occurrence: None)
  Receive Date: 20110301
  Receipt Date: 20110218
  Transmission Date: 20110831
  Serious: Yes (Hospitalization, Other)
  Sender: FDA-Public Use
  Company Number: US-ELI_LILLY_AND_COMPANY-US201102005910

PATIENT
  Age: 90 Year
  Sex: Female

DRUGS (3)
  1. HUMULIN N [Suspect]
     Dosage: 8 U, OTHER
  2. HUMULIN N [Suspect]
     Indication: DIABETES MELLITUS
     Dosage: 2 U, EACH MORNING
  3. HUMALOG [Suspect]
     Dosage: 6 U, EACH EVENING

REACTIONS (4)
  - MACULAR DEGENERATION [None]
  - DRUG HYPERSENSITIVITY [None]
  - VISUAL ACUITY REDUCED [None]
  - CHEST PAIN [None]
